FAERS Safety Report 8300047-9 (Version None)
Quarter: 2012Q2

REPORT INFORMATION
  Report Type: 
  Country: None (occurrence: None)
  Receive Date: 20120420
  Receipt Date: 20120416
  Transmission Date: 20120825
  Serious: No
  Sender: FDA-Public Use
  Company Number: US-PFIZER INC-2012082976

PATIENT
  Sex: Female
  Weight: 45.805 kg

DRUGS (7)
  1. SUTENT [Suspect]
     Indication: METASTATIC RENAL CELL CARCINOMA
     Dosage: 12.5 MG, DAILY
     Dates: start: 20120101, end: 20120101
  2. SUTENT [Suspect]
     Dosage: 25 MG, DAILY (12.5 MG 2 CAPSULES DAILY) (CYCLE IS 4 WEEKS AND 2 OFF)
     Dates: start: 20120101
  3. NORVASC [Concomitant]
     Dosage: UNK
  4. LISINOPRIL [Concomitant]
     Dosage: UNK
  5. ATIVAN [Concomitant]
     Dosage: UNK
  6. METOPROLOL [Concomitant]
     Dosage: UNK
  7. TOPROL-XL [Concomitant]
     Dosage: UNK

REACTIONS (3)
  - DECREASED APPETITE [None]
  - BLOOD PRESSURE INCREASED [None]
  - CHEST PAIN [None]
